FAERS Safety Report 16654127 (Version 2)
Quarter: 2019Q3

REPORT INFORMATION
  Report Type: Report from Study
  Country: US (occurrence: US)
  Receive Date: 20190731
  Receipt Date: 20190830
  Transmission Date: 20191004
  Serious: No
  Sender: FDA-Public Use
  Company Number: US-SA-2019SA204747

PATIENT
  Age: 56 Year
  Sex: Female

DRUGS (1)
  1. TERIFLUNOMIDE. [Suspect]
     Active Substance: TERIFLUNOMIDE
     Indication: MULTIPLE SCLEROSIS
     Dosage: 14 MG, QD
     Route: 048
     Dates: start: 20190628

REACTIONS (5)
  - Dizziness [Recovered/Resolved]
  - Swelling face [Not Recovered/Not Resolved]
  - Headache [Not Recovered/Not Resolved]
  - Product dose omission [Unknown]
  - Toothache [Not Recovered/Not Resolved]

NARRATIVE: CASE EVENT DATE: 2019
